FAERS Safety Report 15850982 (Version 1)
Quarter: 2019Q1

REPORT INFORMATION
  Report Type: Spontaneous
  Country: CA (occurrence: CA)
  Receive Date: 20190122
  Receipt Date: 20190122
  Transmission Date: 20190417
  Serious: Yes (Other)
  Sender: FDA-Public Use
  Company Number: CA-ANIPHARMA-2018-CA-001212

PATIENT
  Age: 63 Year
  Sex: Female

DRUGS (2)
  1. PHENYTOIN SODIUM (NON-SPECIFIC) [Suspect]
     Active Substance: PHENYTOIN SODIUM
     Indication: GENERALISED TONIC-CLONIC SEIZURE
     Dosage: 20 MG/KG
     Route: 042
  2. CLOZAPINE. [Concomitant]
     Active Substance: CLOZAPINE

REACTIONS (4)
  - Rhabdomyolysis [Unknown]
  - Nystagmus [Unknown]
  - Asterixis [Unknown]
  - Ataxia [Unknown]
